FAERS Safety Report 18214096 (Version 1)
Quarter: 2020Q3

REPORT INFORMATION
  Report Type: Spontaneous
  Country: US (occurrence: US)
  Receive Date: 20200831
  Receipt Date: 20200831
  Transmission Date: 20201103
  Serious: No
  Sender: FDA-Public Use
  Company Number: US-TAKEDA-2020TUS036147

PATIENT
  Sex: Male
  Weight: 83.46 kg

DRUGS (3)
  1. LEVOFLOXACIN. [Suspect]
     Active Substance: LEVOFLOXACIN
     Indication: PROSTATITIS
     Dosage: 500 MILLIGRAM, QD
     Route: 048
  2. CIPROFLOXACIN. [Interacting]
     Active Substance: CIPROFLOXACIN
     Indication: PROSTATITIS
     Dosage: 500 MILLIGRAM, BID
     Route: 048
  3. DEXILANT [Suspect]
     Active Substance: DEXLANSOPRAZOLE
     Indication: GASTROOESOPHAGEAL REFLUX DISEASE
     Dosage: 60 MILLIGRAM, QD
     Route: 048

REACTIONS (22)
  - Tendon pain [Recovering/Resolving]
  - Swelling face [Recovered/Resolved]
  - Pain in extremity [Unknown]
  - Nausea [Recovering/Resolving]
  - Rash macular [Recovering/Resolving]
  - Auditory disorder [Recovered/Resolved]
  - Lacrimation increased [Recovering/Resolving]
  - Drug interaction [Unknown]
  - Musculoskeletal chest pain [Unknown]
  - Heart rate abnormal [Recovering/Resolving]
  - Arthralgia [Recovering/Resolving]
  - Pain [Unknown]
  - Balance disorder [Recovering/Resolving]
  - Pruritus [Recovering/Resolving]
  - Back pain [Recovered/Resolved]
  - Dyspnoea [Recovering/Resolving]
  - Gastrooesophageal reflux disease [Unknown]
  - Visual impairment [Recovered/Resolved]
  - Blood pressure abnormal [Recovering/Resolving]
  - Hypoaesthesia [Recovering/Resolving]
  - Neck pain [Recovering/Resolving]
  - Pain in jaw [Recovering/Resolving]
